FAERS Safety Report 8341353-1 (Version None)
Quarter: 2012Q2

REPORT INFORMATION
  Report Type: 
  Country: None (occurrence: None)
  Receive Date: 20120507
  Receipt Date: 20120424
  Transmission Date: 20120825
  Serious: Yes (Hospitalization)
  Sender: FDA-Public Use
  Company Number: US-CELGENEUS-163-21880-12041054

PATIENT
  Sex: Female
  Weight: 87.168 kg

DRUGS (24)
  1. LEVOFLOXACIN [Concomitant]
     Indication: PROPHYLAXIS
     Dosage: 500 MILLIGRAM
     Route: 041
     Dates: start: 20120407, end: 20120407
  2. LORAZEPAM [Concomitant]
     Dosage: 1 MILLIGRAM
     Route: 065
     Dates: start: 20120408
  3. CARAFATE [Concomitant]
     Dosage: 1 GRAM
     Route: 048
     Dates: start: 20120408
  4. REVLIMID [Suspect]
     Dosage: 10 MILLIGRAM
     Route: 048
     Dates: start: 20120302, end: 20120319
  5. MINOCYCLINE HYDROCHLORIDE [Concomitant]
     Dosage: 100 MILLIGRAM
     Route: 048
     Dates: start: 20120408
  6. HEPARIN SODIUM [Concomitant]
     Dosage: 500 UNITS
     Dates: start: 20120408
  7. DEXAMETHASONE SODIUM PHOSPHATE [Concomitant]
     Dosage: 10 MILLIGRAM
     Dates: start: 20120408, end: 20120408
  8. LEVOTHYROXINE SODIUM [Concomitant]
     Dosage: 25 MICROGRAM
     Route: 065
     Dates: start: 20120408
  9. REVLIMID [Suspect]
     Dosage: 5 MILLIGRAM
     Route: 048
     Dates: start: 20120330, end: 20120402
  10. RED BLOOD CELLS [Concomitant]
     Dosage: 2 UNITS
     Route: 041
     Dates: start: 20120408, end: 20120408
  11. ALLOPURINOL [Concomitant]
     Dosage: 200 MILLIGRAM
     Route: 065
     Dates: start: 20120408
  12. DETROL LA [Concomitant]
     Dosage: 4 MILLIGRAM
     Route: 048
     Dates: start: 20120408
  13. REVLIMID [Suspect]
     Dosage: 5 MILLIGRAM
     Route: 048
     Dates: start: 20120414
  14. POTASSIUM CHLORIDE [Concomitant]
     Dosage: 20 MILLIEQUIVALENTS
     Route: 048
     Dates: start: 20120408, end: 20120408
  15. POTASSIUM CHLORIDE [Concomitant]
     Dosage: 20 MILLIEQUIVALENTS
     Route: 048
     Dates: start: 20120408
  16. TYLENOL (CAPLET) [Concomitant]
     Dosage: 650 MILLIGRAM
     Route: 048
     Dates: start: 20120408
  17. NEUPOGEN [Concomitant]
     Indication: NEUTROPENIA
     Route: 058
     Dates: start: 20120408
  18. NEUPOGEN [Concomitant]
     Dosage: 480 MICROGRAM
     Route: 058
     Dates: start: 20120407, end: 20120409
  19. WELLBUTRIN XL [Concomitant]
     Dosage: 300 MILLIGRAM
     Route: 065
     Dates: start: 20120408
  20. HYDROCHLOROTHIAZIDE [Concomitant]
     Dosage: 25 MILLIGRAM
     Route: 065
     Dates: start: 20120408
  21. SODIUM CHLORIDE [Concomitant]
     Dosage: 10 MILLILITER
     Dates: start: 20120408
  22. ALLOPURINOL [Concomitant]
     Dosage: 100 MILLIGRAM
     Route: 065
     Dates: start: 20120408
  23. PRILOSEC [Concomitant]
     Dosage: 20 MILLIGRAM
     Route: 048
     Dates: start: 20120408
  24. SODIUM CHLORIDE [Concomitant]
     Dosage: 500@UD
     Dates: start: 20120408, end: 20120408

REACTIONS (5)
  - HYPOKALAEMIA [None]
  - ELECTROCARDIOGRAM QT PROLONGED [None]
  - PLATELET COUNT DECREASED [None]
  - HAEMOGLOBIN DECREASED [None]
  - FEBRILE NEUTROPENIA [None]
